FAERS Safety Report 6246067-X (Version None)
Quarter: 2009Q2

REPORT INFORMATION
  Report Type: 
  Country: None (occurrence: None)
  Receive Date: 20090626
  Receipt Date: 20090117
  Transmission Date: 20091009
  Serious: No
  Sender: FDA-Public Use
  Company Number: A0764901A

PATIENT
  Sex: Female

DRUGS (1)
  1. IMITREX [Suspect]
     Indication: MIGRAINE
     Dosage: 1TAB AS DIRECTED
     Route: 048

REACTIONS (6)
  - DYSPEPSIA [None]
  - DYSPHAGIA [None]
  - FOREIGN BODY TRAUMA [None]
  - PRODUCT QUALITY ISSUE [None]
  - PRODUCT SOLUBILITY ABNORMAL [None]
  - THROAT IRRITATION [None]
